FAERS Safety Report 23849523 (Version 1)
Quarter: 2024Q2

REPORT INFORMATION
  Report Type: Spontaneous
  Country: DE (occurrence: DE)
  Receive Date: 20240513
  Receipt Date: 20240513
  Transmission Date: 20240715
  Serious: Yes (Other)
  Sender: FDA-Public Use
  Company Number: DE-JNJFOC-20240512268

PATIENT
  Sex: Female

DRUGS (1)
  1. AMIVANTAMAB [Suspect]
     Active Substance: AMIVANTAMAB
     Indication: Product used for unknown indication
     Route: 042

REACTIONS (7)
  - Infusion related reaction [Recovered/Resolved]
  - Dermatitis [Unknown]
  - Acne [Unknown]
  - Gait disturbance [Unknown]
  - Dysuria [Unknown]
  - Dyschezia [Unknown]
  - Nausea [Unknown]
